FAERS Safety Report 23892423 (Version 2)
Quarter: 2024Q3

REPORT INFORMATION
  Report Type: Spontaneous
  Country: US (occurrence: US)
  Receive Date: 20240524
  Receipt Date: 20240819
  Transmission Date: 20241017
  Serious: No
  Sender: BIOCON
  Company Number: US-MIMS-BCONMC-4434

PATIENT

DRUGS (2)
  1. SEMGLEE (INSULIN GLARGINE-YFGN) [Suspect]
     Active Substance: INSULIN GLARGINE-YFGN
     Indication: Product used for unknown indication
     Dosage: 34 UNITS/ML, BID, AT NIGHT
     Route: 058
     Dates: start: 202401
  2. SEMGLEE (INSULIN GLARGINE-YFGN) [Suspect]
     Active Substance: INSULIN GLARGINE-YFGN
     Dosage: 12 UNITS/ML, BID, IN MORNING
     Route: 058
     Dates: start: 202401

REACTIONS (2)
  - Device mechanical issue [Unknown]
  - Device malfunction [Unknown]
